FAERS Safety Report 11734120 (Version 2)
Quarter: 2015Q4

REPORT INFORMATION
  Report Type: Report from Study
  Country: CN (occurrence: CN)
  Receive Date: 20151113
  Receipt Date: 20151126
  Transmission Date: 20160304
  Serious: Yes (Hospitalization)
  Sender: FDA-Public Use
  Company Number: CN-ROCHE-1226804

PATIENT
  Age: 65 Year
  Sex: Male
  Weight: 60 kg

DRUGS (28)
  1. OBINUTUZUMAB [Suspect]
     Active Substance: OBINUTUZUMAB
     Indication: NON-HODGKIN^S LYMPHOMA UNSPECIFIED HISTOLOGY INDOLENT
     Dosage: DOSE CONCERNTRATION : 4 MG/ML, DATE OF THE MOST RECENT DOSE PRIOR TO THE EVENT : 16/MAY/2013, VOLUME
     Route: 042
     Dates: start: 20130502
  2. AMMONIUM GLYCYRRHIZATE [Concomitant]
     Active Substance: AMMONIUM GLYCYRRHIZATE
     Indication: BLOOD LACTATE DEHYDROGENASE INCREASED
     Route: 065
     Dates: start: 20130430, end: 20130517
  3. DIPHENHYDRAMINE HCL [Concomitant]
     Active Substance: DIPHENHYDRAMINE HYDROCHLORIDE
     Indication: IRRITABILITY
     Route: 065
     Dates: start: 20130516, end: 20130516
  4. CEFOPERAZONE/SULBACTAM [Concomitant]
     Active Substance: CEFOPERAZONE\SULBACTAM
     Indication: INFECTION
     Route: 065
     Dates: start: 20130516, end: 20130523
  5. POTASSIUM CHLORIDE. [Concomitant]
     Active Substance: POTASSIUM CHLORIDE
     Route: 065
     Dates: start: 20130520, end: 20130522
  6. TROPISETRON HCL [Concomitant]
     Indication: VOMITING
     Route: 065
     Dates: start: 20130503, end: 20130503
  7. DIPROPHYLLINE [Concomitant]
     Active Substance: DYPHYLLINE
     Indication: ASTHMA
     Route: 065
     Dates: start: 20130521, end: 20130522
  8. VINCRISTINE [Suspect]
     Active Substance: VINCRISTINE
     Indication: NON-HODGKIN^S LYMPHOMA UNSPECIFIED HISTOLOGY INDOLENT
     Dosage: DATE OF THE MOST RECENT DOSE 2MG PRIOR TO THE EVENT : 03/MAY/2013
     Route: 050
     Dates: start: 20130503
  9. SODIUM BICARBONATE. [Concomitant]
     Active Substance: SODIUM BICARBONATE
     Route: 065
     Dates: start: 20130503, end: 20130506
  10. VITAMIN B6 [Concomitant]
     Active Substance: PYRIDOXINE HYDROCHLORIDE
     Route: 065
     Dates: start: 20130503, end: 20130503
  11. ACETAMINOPHEN. [Concomitant]
     Active Substance: ACETAMINOPHEN
     Route: 065
     Dates: start: 20130516, end: 20130516
  12. DIPHENHYDRAMINE HCL [Concomitant]
     Active Substance: DIPHENHYDRAMINE HYDROCHLORIDE
     Indication: VOMITING
     Route: 065
     Dates: start: 20130509, end: 20130509
  13. LIGUSTRAZINE [Concomitant]
     Active Substance: TETRAMETHYLPYRAZINE
     Route: 065
     Dates: start: 20130522, end: 20130524
  14. PREDNISONE. [Suspect]
     Active Substance: PREDNISONE
     Indication: NON-HODGKIN^S LYMPHOMA UNSPECIFIED HISTOLOGY INDOLENT
     Dosage: MOST RECENT DOSE 100MG PRIOR TO THE SAE : 03/MAY/2013
     Route: 048
     Dates: start: 20130503
  15. LEVOFLOXACIN LACTATE [Concomitant]
     Active Substance: LEVOFLOXACIN
     Route: 065
     Dates: start: 20130512, end: 20130516
  16. METHYLPREDNISOLONE SODIUM SUCCINATE. [Concomitant]
     Active Substance: METHYLPREDNISOLONE SODIUM SUCCINATE
     Indication: ASTHMA
     Route: 065
     Dates: start: 20130520, end: 20130520
  17. THYMOSIN ALPHA-1 [Concomitant]
     Indication: IMMUNODEFICIENCY
     Route: 065
     Dates: start: 20130521, end: 20130521
  18. LEVOFLOXACIN LACTATE [Concomitant]
     Active Substance: LEVOFLOXACIN
     Indication: INFECTION
     Route: 065
     Dates: start: 20130511, end: 20130511
  19. LANSOPRAZOLE. [Concomitant]
     Active Substance: LANSOPRAZOLE
     Indication: GASTRIC ULCER
     Route: 065
     Dates: start: 20130521, end: 20130521
  20. LANSOPRAZOLE. [Concomitant]
     Active Substance: LANSOPRAZOLE
     Route: 065
     Dates: start: 20130522, end: 20130524
  21. CYCLOPHOSPHAMIDE. [Suspect]
     Active Substance: CYCLOPHOSPHAMIDE
     Indication: NON-HODGKIN^S LYMPHOMA UNSPECIFIED HISTOLOGY INDOLENT
     Dosage: DATE OF THE MOST RECENT DOSE 1252.5 MG PRIOR TO THE EVENT :03/MAY/2013
     Route: 042
     Dates: start: 20130503
  22. ACETAMINOPHEN. [Concomitant]
     Active Substance: ACETAMINOPHEN
     Indication: HYPERSENSITIVITY
     Route: 065
     Dates: start: 20130502, end: 20130502
  23. METHYLPREDNISOLONE SODIUM SUCCINATE. [Concomitant]
     Active Substance: METHYLPREDNISOLONE SODIUM SUCCINATE
     Route: 065
     Dates: start: 20130521, end: 20130521
  24. LIDOCAINE. [Concomitant]
     Active Substance: LIDOCAINE
     Indication: ANAESTHESIA
     Route: 065
     Dates: start: 20130429, end: 20130429
  25. DOXORUBICIN [Suspect]
     Active Substance: DOXORUBICIN
     Indication: NON-HODGKIN^S LYMPHOMA UNSPECIFIED HISTOLOGY INDOLENT
     Dosage: LAST DOSE ; 83.5 MG, MOST RECENT DOSE PRIOR TO THE EVENT : 03/MAY/2013
     Route: 042
     Dates: start: 20130503
  26. ACETAMINOPHEN. [Concomitant]
     Active Substance: ACETAMINOPHEN
     Indication: VOMITING
     Route: 065
     Dates: start: 20130509, end: 20130509
  27. DIPHENHYDRAMINE HCL [Concomitant]
     Active Substance: DIPHENHYDRAMINE HYDROCHLORIDE
     Indication: HYPERSENSITIVITY
     Route: 065
     Dates: start: 20130502, end: 20130502
  28. LEVOFLOXACIN LACTATE [Concomitant]
     Active Substance: LEVOFLOXACIN
     Route: 065
     Dates: start: 20130524, end: 20130528

REACTIONS (1)
  - Interstitial lung disease [Recovered/Resolved]

NARRATIVE: CASE EVENT DATE: 20130520
